FAERS Safety Report 25889621 (Version 1)
Quarter: 2025Q4

REPORT INFORMATION
  Report Type: Spontaneous
  Country: JP (occurrence: JP)
  Receive Date: 20251007
  Receipt Date: 20251007
  Transmission Date: 20260118
  Serious: Yes (Hospitalization)
  Sender: MACLEODS
  Company Number: JP-MLMSERVICE-20250919-PI651364-00202-2

PATIENT

DRUGS (4)
  1. LINEZOLID [Suspect]
     Active Substance: LINEZOLID
     Indication: Staphylococcal infection
     Route: 065
  2. LINEZOLID [Suspect]
     Active Substance: LINEZOLID
     Indication: Endocarditis
  3. LINEZOLID [Suspect]
     Active Substance: LINEZOLID
     Route: 065
  4. LINEZOLID [Suspect]
     Active Substance: LINEZOLID
     Route: 065

REACTIONS (1)
  - Thrombocytopenia [Recovered/Resolved]
